FAERS Safety Report 13643392 (Version 1)
Quarter: 2017Q2

REPORT INFORMATION
  Report Type: Spontaneous
  Country: US (occurrence: US)
  Receive Date: 20170612
  Receipt Date: 20170612
  Transmission Date: 20170830
  Serious: Yes (Other)
  Sender: FDA-Public Use
  Company Number: PHHY2017US081736

PATIENT
  Age: 18 Year
  Sex: Female

DRUGS (2)
  1. TECFIDERA [Interacting]
     Active Substance: DIMETHYL FUMARATE
     Indication: MULTIPLE SCLEROSIS
     Route: 065
  2. MEDROXYPROGESTERONE [Suspect]
     Active Substance: MEDROXYPROGESTERONE
     Indication: CONTRACEPTION
     Route: 065

REACTIONS (6)
  - Hypovolaemia [Recovered/Resolved]
  - Drug interaction [Unknown]
  - Menorrhagia [Recovered/Resolved]
  - Platelet dysfunction [Recovered/Resolved]
  - Haemorrhage [Recovered/Resolved]
  - Anaemia [Recovered/Resolved]
